FAERS Safety Report 22033801 (Version 1)
Quarter: 2023Q1

REPORT INFORMATION
  Report Type: Report from Study
  Country: CA (occurrence: CA)
  Receive Date: 20230224
  Receipt Date: 20230224
  Transmission Date: 20230418
  Serious: Yes (Other)
  Sender: FDA-Public Use
  Company Number: CA-ABBVIE-4317736

PATIENT
  Sex: Female

DRUGS (1)
  1. SKYRIZI [Suspect]
     Active Substance: RISANKIZUMAB-RZAA
     Indication: Psoriasis
     Route: 058
     Dates: start: 20230110

REACTIONS (5)
  - Hepatic cirrhosis [Unknown]
  - Constipation [Unknown]
  - Hyperhidrosis [Unknown]
  - Muscle spasms [Unknown]
  - Pain [Unknown]
